FAERS Safety Report 10216410 (Version 1)
Quarter: 2014Q2

REPORT INFORMATION
  Report Type: Spontaneous
  Country: FR (occurrence: FR)
  Receive Date: 20140604
  Receipt Date: 20140604
  Transmission Date: 20141212
  Serious: Yes (Life-Threatening, Hospitalization)
  Sender: FDA-Public Use
  Company Number: FR-SA-2014SA069873

PATIENT
  Age: 20 Year
  Sex: Female

DRUGS (14)
  1. STILNOX [Suspect]
     Indication: PRODUCT USED FOR UNKNOWN INDICATION
     Route: 048
     Dates: start: 201309
  2. DOLIPRANE [Suspect]
     Indication: PRODUCT USED FOR UNKNOWN INDICATION
     Route: 048
     Dates: start: 201309
  3. TAZOCILLINE [Suspect]
     Indication: INFECTION
     Route: 042
     Dates: start: 20130914, end: 20130930
  4. VANCOMYCINE [Suspect]
     Indication: INFECTION
     Route: 048
  5. INEXIUM [Suspect]
     Indication: PRODUCT USED FOR UNKNOWN INDICATION
     Route: 048
     Dates: start: 201309
  6. AUGMENTIN [Suspect]
     Indication: PRODUCT USED FOR UNKNOWN INDICATION
     Route: 042
     Dates: start: 20130907, end: 20130912
  7. ACUPAN [Suspect]
     Indication: PRODUCT USED FOR UNKNOWN INDICATION
     Route: 065
     Dates: start: 201309
  8. ACTISKENAN [Suspect]
     Indication: PRODUCT USED FOR UNKNOWN INDICATION
     Route: 048
     Dates: start: 201309
  9. ATARAX [Suspect]
     Indication: PRODUCT USED FOR UNKNOWN INDICATION
     Route: 048
     Dates: start: 201309
  10. HYPNOVEL [Concomitant]
     Dates: start: 20130907, end: 20130912
  11. SUFENTANIL [Concomitant]
     Dates: start: 20130907, end: 20130912
  12. NORADRENALINE [Concomitant]
     Dates: start: 20130907, end: 20130912
  13. LOVENOX [Concomitant]
     Route: 042
     Dates: start: 201309
  14. ORAL CONTRACEPTIVE NOS [Concomitant]
     Route: 048

REACTIONS (1)
  - Drug reaction with eosinophilia and systemic symptoms [Recovered/Resolved]
